FAERS Safety Report 7797197-2 (Version None)
Quarter: 2011Q4

REPORT INFORMATION
  Report Type: 
  Country: None (occurrence: None)
  Receive Date: 20111003
  Receipt Date: 20100329
  Transmission Date: 20120403
  Serious: Yes (Hospitalization, Disabling, Other)
  Sender: FDA-Public Use
  Company Number: 2010SP019254

PATIENT
  Age: 34 Year
  Sex: Female
  Weight: 67.586 kg

DRUGS (5)
  1. ASPIRIN [Suspect]
     Indication: DEEP VEIN THROMBOSIS
  2. CLARITIN [Concomitant]
  3. NUVARING [Suspect]
  4. MULTI-VITAMIN [Concomitant]
  5. NUVARING [Suspect]
     Indication: CONTRACEPTION
     Dosage: VAG
     Route: 067
     Dates: start: 20090310, end: 20090730

REACTIONS (47)
  - OVARIAN CYST [None]
  - FATIGUE [None]
  - EYE SWELLING [None]
  - PNEUMONIA [None]
  - OEDEMA [None]
  - NOCTURIA [None]
  - MITRAL VALVE INCOMPETENCE [None]
  - DIZZINESS [None]
  - INFLUENZA LIKE ILLNESS [None]
  - VENTRICULAR EXTRASYSTOLES [None]
  - MATERNAL EXPOSURE DURING PREGNANCY [None]
  - OEDEMA PERIPHERAL [None]
  - URINARY TRACT INFECTION [None]
  - PRESYNCOPE [None]
  - VOMITING [None]
  - HYPERSENSITIVITY [None]
  - RESTLESS LEGS SYNDROME [None]
  - RASH [None]
  - ABORTION INDUCED [None]
  - PALPITATIONS [None]
  - SWELLING FACE [None]
  - VISION BLURRED [None]
  - NAUSEA [None]
  - HYPOKALAEMIA [None]
  - ERYTHEMA NODOSUM [None]
  - VAGINAL INFECTION [None]
  - HAEMATEMESIS [None]
  - DEEP VEIN THROMBOSIS [None]
  - CYTOMEGALOVIRUS TEST POSITIVE [None]
  - PELVIC PAIN [None]
  - TRICUSPID VALVE INCOMPETENCE [None]
  - PNEUMONITIS [None]
  - PULMONARY EMBOLISM [None]
  - VARICOSE VEIN [None]
  - SUBCUTANEOUS NODULE [None]
  - SLEEP APNOEA SYNDROME [None]
  - CONSTIPATION [None]
  - WEIGHT DECREASED [None]
  - SYNCOPE [None]
  - HEART RATE IRREGULAR [None]
  - EPSTEIN-BARR VIRUS ANTIGEN POSITIVE [None]
  - BRONCHITIS [None]
  - NIGHT SWEATS [None]
  - ASTHENIA [None]
  - ABDOMINAL PAIN [None]
  - PULMONARY VALVE INCOMPETENCE [None]
  - WEIGHT INCREASED [None]
